FAERS Safety Report 5497278-2 (Version None)
Quarter: 2007Q4

REPORT INFORMATION
  Report Type: 
  Country: None (occurrence: None)
  Receive Date: 20071025
  Receipt Date: 20071015
  Transmission Date: 20080405
  Serious: Yes (Hospitalization)
  Sender: FDA-Public Use
  Company Number: US-AMGEN-STX190061

PATIENT
  Sex: Male
  Weight: 84 kg

DRUGS (3)
  1. ENBREL [Suspect]
     Indication: POLYARTHRITIS
     Route: 058
     Dates: start: 20000518, end: 20060308
  2. CELEBREX [Concomitant]
  3. IBUPROFEN [Concomitant]

REACTIONS (2)
  - ARTHRITIS [None]
  - RENAL CELL CARCINOMA STAGE UNSPECIFIED [None]
